FAERS Safety Report 4404619-3 (Version None)
Quarter: 2004Q3

REPORT INFORMATION
  Report Type: 
  Country: None (occurrence: None)
  Receive Date: 20040721
  Receipt Date: 20040721
  Transmission Date: 20050211
  Serious: Yes (Life-Threatening, Hospitalization)
  Sender: FDA-Public Use
  Company Number: None

PATIENT
  Age: 52 Year
  Sex: Male
  Weight: 95.709 kg

DRUGS (4)
  1. ENBREL [Suspect]
     Indication: PSORIASIS
     Dosage: ENBREL 25 MG BIWE SUBCUTANEOUS
     Route: 058
     Dates: start: 20021210, end: 20040615
  2. ENBREL [Suspect]
     Indication: PSORIATIC ARTHROPATHY
     Dosage: ENBREL 25 MG BIWE SUBCUTANEOUS
     Route: 058
     Dates: start: 20021210, end: 20040615
  3. METHOTREXATE [Suspect]
     Indication: PSORIASIS
     Dosage: METHOTREXATE 15 MG Q WE ORAL
     Route: 048
     Dates: start: 19971101, end: 20040622
  4. METHOTREXATE [Suspect]
     Indication: PSORIATIC ARTHROPATHY
     Dosage: METHOTREXATE 15 MG Q WE ORAL
     Route: 048
     Dates: start: 19971101, end: 20040622

REACTIONS (2)
  - BETA HAEMOLYTIC STREPTOCOCCAL INFECTION [None]
  - PELVIC ABSCESS [None]
